FAERS Safety Report 9917206 (Version 2)
Quarter: 2014Q1

REPORT INFORMATION
  Report Type: Spontaneous
  Country: BR (occurrence: BR)
  Receive Date: 20140221
  Receipt Date: 20140221
  Transmission Date: 20141002
  Serious: Yes (Death)
  Sender: FDA-Public Use
  Company Number: BR-PFIZER INC-2014037008

PATIENT
  Age: 67 Year
  Sex: Female
  Weight: 62 kg

DRUGS (4)
  1. CHAMPIX [Suspect]
     Indication: SMOKING CESSATION THERAPY
     Dosage: 1 TABLET DAILY
     Route: 048
     Dates: start: 20140201
  2. CHAMPIX [Suspect]
     Dosage: 1 TABLET (0.5MG), 2X/DAY (EVERY 12 HOURS)
     Route: 048
     Dates: start: 20140203
  3. CHAMPIX [Suspect]
     Dosage: 1 MG, 2X/DAY
     Dates: start: 20140210
  4. SERETIDE [Concomitant]
     Indication: DYSPNOEA

REACTIONS (9)
  - Death [Fatal]
  - Dyspnoea [Recovered/Resolved]
  - Swelling face [Recovered/Resolved]
  - Local swelling [Recovered/Resolved]
  - Gastrointestinal disorder [Not Recovered/Not Resolved]
  - Retching [Not Recovered/Not Resolved]
  - Malaise [Not Recovered/Not Resolved]
  - Vomiting [Recovered/Resolved]
  - Dizziness [Recovered/Resolved]
